FAERS Safety Report 5776511-3 (Version None)
Quarter: 2008Q2

REPORT INFORMATION
  Report Type: 
  Country: None (occurrence: None)
  Receive Date: 20080618
  Receipt Date: 20080609
  Transmission Date: 20081010
  Serious: Yes (Other)
  Sender: FDA-Public Use
  Company Number: US-WYE-H04426808

PATIENT
  Age: 56 Year
  Sex: Female
  Weight: 45.4 kg

DRUGS (4)
  1. EFFEXOR XR [Suspect]
     Indication: WEIGHT INCREASED
     Route: 048
     Dates: start: 20080528, end: 20080603
  2. EFFEXOR XR [Suspect]
     Route: 048
     Dates: start: 20080604
  3. CALCIUM [Concomitant]
     Dosage: UNKNOWN
  4. CENTRUM SILVER [Concomitant]
     Dosage: UNKNOWN

REACTIONS (6)
  - CONDITION AGGRAVATED [None]
  - DIPLOPIA [None]
  - EYE MOVEMENT DISORDER [None]
  - MYASTHENIA GRAVIS [None]
  - THYROID DISORDER [None]
  - VISION BLURRED [None]
